FAERS Safety Report 24078152 (Version 2)
Quarter: 2025Q2

REPORT INFORMATION
  Report Type: Spontaneous
  Country: CN (occurrence: CN)
  Receive Date: 20240711
  Receipt Date: 20250608
  Transmission Date: 20250717
  Serious: Yes (Other)
  Sender: COHERUS
  Company Number: CN-SHANGHAI JUNSHI BIOSCIENCES CO., LTD.-CN2024010488

PATIENT

DRUGS (4)
  1. TORIPALIMAB [Suspect]
     Active Substance: TORIPALIMAB
     Indication: Oesophageal carcinoma
     Dates: start: 20240604, end: 20240604
  2. PACLITAXEL [Suspect]
     Active Substance: PACLITAXEL
     Indication: Oesophageal carcinoma
     Route: 041
     Dates: start: 20240604, end: 20240604
  3. CISPLATIN [Suspect]
     Active Substance: CISPLATIN
     Indication: Oesophageal carcinoma
     Route: 041
     Dates: start: 20240604, end: 20240604
  4. CISPLATIN [Suspect]
     Active Substance: CISPLATIN
     Dates: start: 20240604, end: 20240604

REACTIONS (3)
  - White blood cell count decreased [Recovered/Resolved]
  - Product administration error [Unknown]
  - Medication error [Unknown]

NARRATIVE: CASE EVENT DATE: 20240604
